FAERS Safety Report 21389351 (Version 5)
Quarter: 2023Q1

REPORT INFORMATION
  Report Type: Report from Study
  Country: US (occurrence: US)
  Receive Date: 20220929
  Receipt Date: 20230216
  Transmission Date: 20230418
  Serious: Yes (Hospitalization)
  Sender: FDA-Public Use
  Company Number: US-NOVARTISTESTPH-NVSC2022US219907

PATIENT
  Age: 83 Year
  Sex: Female

DRUGS (1)
  1. ENTRESTO [Suspect]
     Active Substance: SACUBITRIL\VALSARTAN
     Indication: Product used for unknown indication
     Dosage: 0.5 DOSAGE FORM, BID
     Route: 048
     Dates: start: 20220919

REACTIONS (10)
  - Pneumothorax [Unknown]
  - Pulmonary oedema [Unknown]
  - Dyspnoea [Unknown]
  - COVID-19 [Unknown]
  - Oropharyngeal pain [Unknown]
  - Orthostatic hypotension [Unknown]
  - Dizziness [Recovering/Resolving]
  - Fall [Not Recovered/Not Resolved]
  - Prescribed underdose [Unknown]
  - Wrong technique in product usage process [Unknown]

NARRATIVE: CASE EVENT DATE: 20220919
